FAERS Safety Report 17229305 (Version 2)
Quarter: 2020Q1

REPORT INFORMATION
  Report Type: Spontaneous
  Country: DE (occurrence: DE)
  Receive Date: 20200103
  Receipt Date: 20200221
  Transmission Date: 20200409
  Serious: Yes (Death, Other)
  Sender: FDA-Public Use
  Company Number: DE-HIKMA PHARMACEUTICALS USA INC.-DE-H14001-19-50250

PATIENT
  Age: 49 Year
  Sex: Female
  Weight: 52 kg

DRUGS (9)
  1. PROPOFOL. [Concomitant]
     Active Substance: PROPOFOL
     Indication: STUPOR
     Route: 042
     Dates: start: 20191119
  2. CEFUROXIM HIKMA [Suspect]
     Active Substance: CEFUROXIME
     Indication: ANTIBIOTIC PROPHYLAXIS
     Route: 042
     Dates: start: 20191119
  3. CEFUROXIM HIKMA [Suspect]
     Active Substance: CEFUROXIME
     Indication: COLOSTOMY
  4. FENTANYL. [Concomitant]
     Active Substance: FENTANYL
     Indication: STUPOR
     Route: 042
     Dates: start: 20191119
  5. DORMICUM [Concomitant]
     Indication: PRODUCT USED FOR UNKNOWN INDICATION
     Route: 048
     Dates: start: 20191119
  6. PREGABALIN. [Concomitant]
     Active Substance: PREGABALIN
     Indication: PRODUCT USED FOR UNKNOWN INDICATION
     Route: 048
  7. TRACRIUM [Concomitant]
     Active Substance: ATRACURIUM BESYLATE
     Indication: STUPOR
     Route: 042
     Dates: start: 20191119
  8. METRONIDAZOL [Concomitant]
     Active Substance: METRONIDAZOLE
     Indication: ANTIBIOTIC PROPHYLAXIS
     Route: 042
     Dates: start: 20191119
  9. SEVOFLURAN [Concomitant]
     Active Substance: SEVOFLURANE
     Indication: STUPOR
     Route: 065
     Dates: start: 20191119

REACTIONS (1)
  - Anaphylactic shock [Fatal]

NARRATIVE: CASE EVENT DATE: 20191119
